FAERS Safety Report 6186245-1 (Version None)
Quarter: 2009Q2

REPORT INFORMATION
  Report Type: 
  Country: None (occurrence: None)
  Receive Date: 20090511
  Receipt Date: 20090506
  Transmission Date: 20091009
  Serious: Yes (Death, Life-Threatening, Hospitalization)
  Sender: FDA-Public Use
  Company Number: PHHY2009BR17269

PATIENT
  Sex: Female

DRUGS (5)
  1. DIOVAN [Suspect]
     Dosage: 1 TABLET (80 MG) DAILY AT NIGHT
     Route: 048
     Dates: start: 20070101
  2. INSULATARD NPH HUMAN [Concomitant]
     Indication: DIABETES MELLITUS
     Dosage: IN THE MORNING AND AT NIGHT
     Route: 058
  3. SUSTRATE [Concomitant]
     Dosage: 2 TABLETS A DAY
     Route: 048
     Dates: start: 20040101
  4. OMEPRAZOLE [Concomitant]
     Indication: GASTRITIS
     Dosage: 1 TABLET IN THE MORNING
     Route: 048
     Dates: start: 20010101
  5. OMEPRAZOLE [Concomitant]
     Indication: ULCER

REACTIONS (7)
  - ACUTE MYOCARDIAL INFARCTION [None]
  - CEREBROVASCULAR ACCIDENT [None]
  - COMA [None]
  - DIABETES MELLITUS [None]
  - DIABETIC NEPHROPATHY [None]
  - HAEMODIALYSIS [None]
  - RENAL FAILURE CHRONIC [None]
